FAERS Safety Report 9221495 (Version 1)
Quarter: 2013Q1

REPORT INFORMATION
  Report Type: Spontaneous
  Country: US (occurrence: None)
  Receive Date: 20120831
  Receipt Date: 20120831
  Transmission Date: 20140127
  Serious: No
  Sender: FDA-Public Use
  Company Number: 1000029693

PATIENT
  Age: 61 Year
  Sex: Female

DRUGS (10)
  1. DALIRESP [Suspect]
     Indication: CHRONIC OBSTRUCTIVE PULMONARY DISEASE
     Dosage: (500 MCG2 1 IN 1 D)
     Route: 048
     Dates: start: 20120329, end: 20120405
  2. PULMICORT (BUDESONIDE) (BUDESONIDE) [Concomitant]
  3. ALBUTEROL (ALBUTEROL) (ALBUTEROL) [Concomitant]
  4. POTASSIUM (POTASSIUM) (POTASSIUM) [Concomitant]
  5. SYNTHROID (LEVOTHYROXINE SODIUM) (LEVOTHYROXINE SODIUM) [Concomitant]
  6. KEPPRA (LEVETIRACETAM) (LEVETIRACETAM) [Concomitant]
  7. LASIX (FUROSEMIDE) (FUROSEMIDE) [Concomitant]
  8. PRILOSEC (OMEPRAZOLE) (OMEPRAZOLE) [Concomitant]
  9. LOVAZA (OMEGA-3 MARINE TRIGLYCERIDES) (OMEGA-3 MARINE TRIGLYCERIDES) [Concomitant]
  10. TRAZODONE (TRAZODONE) (TRAZODONE) [Concomitant]

REACTIONS (6)
  - Headache [None]
  - Back pain [None]
  - Influenza like illness [None]
  - Decreased appetite [None]
  - Nausea [None]
  - Weight decreased [None]
